FAERS Safety Report 13967075 (Version 32)
Quarter: 2022Q4

REPORT INFORMATION
  Report Type: Spontaneous
  Country: GB (occurrence: GB)
  Receive Date: 20170914
  Receipt Date: 20221222
  Transmission Date: 20230113
  Serious: Yes (Death, Other)
  Sender: FDA-Public Use
  Company Number: None

PATIENT
  Age: 44 Year
  Sex: Female

DRUGS (8)
  1. ACETAMINOPHEN AND CODEINE [Suspect]
     Active Substance: ACETAMINOPHEN\CODEINE PHOSPHATE
     Indication: Analgesic therapy
     Dosage: 28 TABLETS DAILY [112 TABLET, FOR TWO WEEKS]?ADDITIONAL INFO: PAIN KILLER
     Route: 048
  2. ACETAMINOPHEN AND CODEINE [Suspect]
     Active Substance: ACETAMINOPHEN\CODEINE PHOSPHATE
     Indication: Pain
  3. ACETAMINOPHEN [Suspect]
     Active Substance: ACETAMINOPHEN
     Indication: Pain
     Dosage: 28 DF,QD?ADDITIONAL INFO: OFF LABEL USE,ABUSE
     Route: 048
     Dates: start: 20161014, end: 20161014
  4. MORPHINE SULFATE [Suspect]
     Active Substance: MORPHINE SULFATE
     Indication: Product used for unknown indication
     Dosage: 6 OR 7 TABLETS; IN TOTAL?ADDITIONAL INFO: OFF LABEL USE,ABUSE
     Route: 065
     Dates: start: 20161014, end: 20161014
  5. PREGABALIN [Suspect]
     Active Substance: PREGABALIN
     Indication: Product used for unknown indication
     Dosage: 3 DF TOTAL IN TOTAL?ADDITIONAL INFO: OFF LABEL USE,ABUSE
     Route: 065
     Dates: start: 20161015, end: 20161015
  6. ZOPICLONE [Suspect]
     Active Substance: ZOPICLONE
     Indication: Sleep disorder
     Dosage: PRESCRIBED 14 TABLETS OF ZOPICLONE EVERY TWO WEEKS.?14 TABLET, FOR TWO WEEKS?ADDITIONAL INFO: SLEEPI
     Route: 048
  7. ZOPICLONE [Suspect]
     Active Substance: ZOPICLONE
     Dosage: 14 DF FOR TWO WEEKS?ADDITIONAL INFO: OFF LABEL USE,ABUSE
     Route: 048
  8. COCODAMOL [Suspect]
     Active Substance: ACETAMINOPHEN\CODEINE PHOSPHATE
     Indication: Analgesic therapy
     Dosage: 28 DF, QD [112 TABLET, FOR TWO WEEKS]?ADDITIONAL INFO: ABUSE,OFF LABEL USE
     Route: 048

REACTIONS (12)
  - Toxicity to various agents [Fatal]
  - Dysarthria [Fatal]
  - Vision blurred [Fatal]
  - Eye pain [Fatal]
  - Gait disturbance [Fatal]
  - Drug abuse [Fatal]
  - Drug diversion [Fatal]
  - Intentional product misuse [Fatal]
  - Prescription drug used without a prescription [Fatal]
  - Accidental overdose [Fatal]
  - Pneumonia [Fatal]
  - Toxicity to various agents [Fatal]

NARRATIVE: CASE EVENT DATE: 20161001
